FAERS Safety Report 12073096 (Version 1)
Quarter: 2016Q1

REPORT INFORMATION
  Report Type: Spontaneous
  Country: US (occurrence: None)
  Receive Date: 20160211
  Receipt Date: 20160211
  Transmission Date: 20160526
  Serious: Yes (Other)
  Sender: FDA-Public Use
  Company Number: None

PATIENT
  Age: 76 Year
  Sex: Female
  Weight: 64 kg

DRUGS (13)
  1. PROCHLORPERAZINE (COMPAZINE) [Concomitant]
  2. OBINUTUZUMAB [Suspect]
     Active Substance: OBINUTUZUMAB
  3. ALLOPURINOL (ZYLOPRIM) [Concomitant]
  4. CALCIUM CARBONATE-VITAMIN D (CALCIUM 500+D) [Concomitant]
  5. TYLENOL [Concomitant]
     Active Substance: ACETAMINOPHEN
  6. NATTOKINASE [Concomitant]
     Active Substance: NATTOKINASE
  7. ACYCLOVIR (ZOVIRAX) [Concomitant]
  8. ASCORBIC ACID (VITAMIN C) [Concomitant]
     Active Substance: ASCORBIC ACID
  9. CHLORAMBUCIL (LEUKERAN) [Concomitant]
  10. OMEGA 3 FATTY ACID (FISH OIL) [Concomitant]
  11. CARVEDILOL (COREG) [Concomitant]
  12. ONE-A-DAY BONE STRENGTH [Concomitant]
  13. FERROUS GLUCONATE(36 FE) [Concomitant]

REACTIONS (2)
  - Liver function test increased [None]
  - Laboratory test abnormal [None]

NARRATIVE: CASE EVENT DATE: 20150803
